FAERS Safety Report 10648043 (Version 1)
Quarter: 2014Q4

REPORT INFORMATION
  Report Type: Spontaneous
  Country: US (occurrence: None)
  Receive Date: 20141210
  Receipt Date: 20141210
  Transmission Date: 20150529
  Serious: Yes (Death)
  Sender: FDA-Public Use
  Company Number: 2014-US-016089

PATIENT
  Age: 62 Year
  Sex: Male

DRUGS (6)
  1. LOPID [Concomitant]
     Active Substance: GEMFIBROZIL
  2. LIPITOR [Concomitant]
     Active Substance: ATORVASTATIN CALCIUM
  3. VITAMIN E (TOCOPHERYL ACID SUCCINATE) [Concomitant]
  4. POLYETHYLENE GLYCOL 3350 (MACROGOL 3350) [Concomitant]
  5. FAZACLO [Suspect]
     Active Substance: CLOZAPINE
     Indication: SCHIZOPHRENIA, UNDIFFERENTIATED TYPE
     Route: 048
     Dates: start: 20070813, end: 20141022
  6. VITAMIN D3 [Concomitant]
     Active Substance: CHOLECALCIFEROL

REACTIONS (1)
  - Cardiac arrest [None]

NARRATIVE: CASE EVENT DATE: 20141105
